FAERS Safety Report 10725870 (Version 1)
Quarter: 2015Q1

REPORT INFORMATION
  Report Type: Spontaneous
  Country: FR (occurrence: FR)
  Receive Date: 20150121
  Receipt Date: 20150121
  Transmission Date: 20150721
  Serious: Yes (Hospitalization)
  Sender: FDA-Public Use
  Company Number: FR-AUROBINDO-AUR-APL-2015-00054

PATIENT
  Age: 58 Year
  Sex: Male

DRUGS (4)
  1. LOVENOX [Concomitant]
     Active Substance: ENOXAPARIN SODIUM
     Indication: PRODUCT USED FOR UNKNOWN INDICATION
     Dosage: 0.4 ML, TWO TIMES A DAY
     Route: 065
  2. PLAVIX [Concomitant]
     Active Substance: CLOPIDOGREL BISULFATE
     Indication: PRODUCT USED FOR UNKNOWN INDICATION
     Dosage: 75 MG, ONCE A DAY
     Route: 048
  3. ATENOLOL ARROW 50 MG [Suspect]
     Active Substance: ATENOLOL
     Indication: HYPERTENSION
     Dosage: 50 MG, ONCE A DAY
     Route: 048
  4. KARDEGIC [Concomitant]
     Active Substance: ASPIRIN LYSINE
     Indication: PRODUCT USED FOR UNKNOWN INDICATION
     Dosage: 75 MG, ONCE A DAY
     Route: 048

REACTIONS (13)
  - Haematoma [Recovered/Resolved]
  - Bradycardia [Recovered/Resolved]
  - Chest pain [Recovered/Resolved]
  - Fall [Recovered/Resolved]
  - Muscular weakness [Recovered/Resolved]
  - Subarachnoid haemorrhage [Recovered/Resolved]
  - Cardio-respiratory arrest [Recovered/Resolved]
  - Anaemia [Recovered/Resolved]
  - Hypertension [Recovered/Resolved]
  - Discomfort [Recovered/Resolved]
  - Hypotension [Recovered/Resolved]
  - Syncope [Recovered/Resolved]
  - Dyspnoea [Recovered/Resolved]

NARRATIVE: CASE EVENT DATE: 20130602
